FAERS Safety Report 11777398 (Version 1)
Quarter: 2015Q4

REPORT INFORMATION
  Report Type: Spontaneous
  Country: US (occurrence: US)
  Receive Date: 20151125
  Receipt Date: 20151125
  Transmission Date: 20160304
  Serious: No
  Sender: FDA-Public Use
  Company Number: US-MALLINCKRODT-T201505185

PATIENT
  Age: 32 Year
  Sex: Female

DRUGS (1)
  1. GABLOFEN [Suspect]
     Active Substance: BACLOFEN
     Indication: MUSCLE SPASTICITY
     Dosage: 462 MCG/DAY
     Route: 037

REACTIONS (1)
  - Implant site extravasation [Recovered/Resolved]

NARRATIVE: CASE EVENT DATE: 20151103
